FAERS Safety Report 16376779 (Version 3)
Quarter: 2019Q4

REPORT INFORMATION
  Report Type: Spontaneous
  Country: US (occurrence: US)
  Receive Date: 20190531
  Receipt Date: 20191015
  Transmission Date: 20200122
  Serious: Yes (Other)
  Sender: FDA-Public Use
  Company Number: US-BAUSCH-BL-2019-015379

PATIENT
  Age: 30 Year
  Sex: Male
  Weight: 59.02 kg

DRUGS (2)
  1. ALDARA [Suspect]
     Active Substance: IMIQUIMOD
     Indication: ANOGENITAL WARTS
     Dosage: 1 APPLICATION INTERNALLY IN THE ANAL REGION
     Route: 050
     Dates: start: 20190306, end: 201904
  2. ALDARA [Suspect]
     Active Substance: IMIQUIMOD
     Dosage: ONE APPLICATION ONCE WEEKLY
     Route: 050
     Dates: start: 201904, end: 20190515

REACTIONS (3)
  - Coeliac disease [Not Recovered/Not Resolved]
  - Gastrooesophageal reflux disease [Not Recovered/Not Resolved]
  - Product use issue [Unknown]

NARRATIVE: CASE EVENT DATE: 20190306
